FAERS Safety Report 16786802 (Version 1)
Quarter: 2019Q3

REPORT INFORMATION
  Report Type: Spontaneous
  Country: US (occurrence: US)
  Receive Date: 20190909
  Receipt Date: 20190909
  Transmission Date: 20191005
  Serious: Yes (Other)
  Sender: FDA-Public Use
  Company Number: US-ROCHE-2395912

PATIENT
  Sex: Female

DRUGS (2)
  1. ATIVAN [Concomitant]
     Active Substance: LORAZEPAM
  2. OCREVUS [Suspect]
     Active Substance: OCRELIZUMAB
     Indication: PRODUCT USED FOR UNKNOWN INDICATION
     Route: 065

REACTIONS (3)
  - Gait disturbance [Unknown]
  - Abnormal behaviour [Unknown]
  - Multiple sclerosis relapse [Unknown]
